FAERS Safety Report 4867424-X (Version None)
Quarter: 2005Q4

REPORT INFORMATION
  Report Type: 
  Country: None (occurrence: None)
  Receive Date: 20051222
  Receipt Date: 20051214
  Transmission Date: 20060501
  Serious: Yes (Other)
  Sender: FDA-Public Use
  Company Number: 2005070472

PATIENT
  Sex: Female

DRUGS (7)
  1. NEURONTIN [Suspect]
     Indication: AFFECTIVE DISORDER
     Dosage: 2400 MG (300 MG, 1 D), ORAL
     Route: 048
  2. NEURONTIN [Suspect]
     Indication: BIPOLAR DISORDER
     Dosage: 2400 MG (300 MG, 1 D), ORAL
     Route: 048
  3. NEURONTIN [Suspect]
     Indication: CONVULSION
     Dosage: 2400 MG (300 MG, 1 D), ORAL
     Route: 048
  4. ZOLOFT [Suspect]
     Indication: ILL-DEFINED DISORDER
     Dosage: 50 MG (50 MG, 1 IN 1 D)
  5. LITHIUM CARBONATE [Suspect]
     Indication: AFFECTIVE DISORDER
     Dosage: 900 MG (300 MG, 3 IN 1 D)
  6. LITHIUM CARBONATE [Concomitant]
  7. KLONOPIN [Concomitant]

REACTIONS (15)
  - CONDITION AGGRAVATED [None]
  - DISTURBANCE IN SOCIAL BEHAVIOUR [None]
  - ECONOMIC PROBLEM [None]
  - FEELING ABNORMAL [None]
  - FEELING DRUNK [None]
  - HALLUCINATION, OLFACTORY [None]
  - HALLUCINATION, VISUAL [None]
  - HEADACHE [None]
  - LOGORRHOEA [None]
  - MALAISE [None]
  - MANIA [None]
  - MENTAL DISORDER [None]
  - OBSESSIVE-COMPULSIVE DISORDER [None]
  - PARANOIA [None]
  - RESTLESS LEGS SYNDROME [None]
